FAERS Safety Report 4738055-7 (Version None)
Quarter: 2005Q3

REPORT INFORMATION
  Report Type: 
  Country: None (occurrence: None)
  Receive Date: 20050805
  Receipt Date: 20050805
  Transmission Date: 20060218
  Serious: Yes (Hospitalization)
  Sender: FDA-Public Use
  Company Number: None

PATIENT
  Age: 62 Year
  Sex: Male

DRUGS (2)
  1. FLUOROURACIL [Suspect]
     Route: 042
  2. LEUCOVORIN   IV [Suspect]

REACTIONS (1)
  - DIARRHOEA [None]
